FAERS Safety Report 4881604-9 (Version None)
Quarter: 2006Q1

REPORT INFORMATION
  Report Type: 
  Country: None (occurrence: None)
  Receive Date: 20060116
  Receipt Date: 20050608
  Transmission Date: 20060701
  Serious: Yes (Other)
  Sender: FDA-Public Use
  Company Number: PHNU2005DE02201

PATIENT
  Sex: Male

DRUGS (2)
  1. AREDIA [Suspect]
     Indication: RENAL CELL CARCINOMA STAGE UNSPECIFIED
     Dosage: UNK, UNK
     Dates: start: 20000801, end: 20020101
  2. ZOMETA [Suspect]
     Indication: RENAL CELL CARCINOMA STAGE UNSPECIFIED
     Dosage: UNK, UNK
     Dates: start: 20020201

REACTIONS (1)
  - OSTEONECROSIS [None]
